FAERS Safety Report 9318828 (Version 1)
Quarter: 2013Q2

REPORT INFORMATION
  Report Type: Spontaneous
  Country: US (occurrence: US)
  Receive Date: 20130530
  Receipt Date: 20130530
  Transmission Date: 20140414
  Serious: Yes (Other)
  Sender: FDA-Public Use
  Company Number: US-JNJFOC-20130513397

PATIENT
  Sex: Female

DRUGS (2)
  1. XARELTO [Suspect]
     Indication: DEEP VEIN THROMBOSIS
     Route: 048
     Dates: start: 2013, end: 201305
  2. TERIFLUNOMIDE [Concomitant]
     Indication: MULTIPLE SCLEROSIS
     Route: 065

REACTIONS (1)
  - Pulmonary embolism [Unknown]
